FAERS Safety Report 25767074 (Version 4)
Quarter: 2025Q4

REPORT INFORMATION
  Report Type: Spontaneous
  Country: US (occurrence: US)
  Receive Date: 20250905
  Receipt Date: 20251103
  Transmission Date: 20260118
  Serious: No
  Sender: SANOFI AVENTIS
  Company Number: US-SA-2025SA265509

PATIENT
  Age: 62 Year
  Sex: Female

DRUGS (2)
  1. DUPIXENT [Suspect]
     Active Substance: DUPILUMAB
     Indication: Nasal polyps
     Dosage: 300 MG, QOW
     Route: 058
     Dates: start: 20191031, end: 20250911
  2. DUPIXENT [Suspect]
     Active Substance: DUPILUMAB
     Indication: Chronic sinusitis
     Dosage: 300 MG, QOW
     Route: 058
     Dates: start: 2025

REACTIONS (11)
  - Ocular demodicosis [Unknown]
  - Episcleritis [Unknown]
  - Meibomian gland dysfunction [Unknown]
  - Epistaxis [Unknown]
  - Vitreous floaters [Unknown]
  - Photopsia [Unknown]
  - Eye pain [Unknown]
  - Ocular hyperaemia [Unknown]
  - Illness [Unknown]
  - Pruritus [Unknown]
  - Blepharitis [Unknown]

NARRATIVE: CASE EVENT DATE: 20250101
